FAERS Safety Report 9086219 (Version 1)
Quarter: 2013Q1

REPORT INFORMATION
  Report Type: Spontaneous
  Country: US (occurrence: US)
  Receive Date: 20130131
  Receipt Date: 20130131
  Transmission Date: 20140127
  Serious: Yes (Hospitalization)
  Sender: FDA-Public Use
  Company Number: US-PFIZER INC-2013040198

PATIENT
  Sex: Male
  Weight: 136 kg

DRUGS (1)
  1. AMIODARONE HCL [Suspect]
     Indication: CARDIAC DISORDER
     Dosage: UNK
     Dates: start: 2012, end: 201212

REACTIONS (1)
  - Pneumonitis [Not Recovered/Not Resolved]
